FAERS Safety Report 21040269 (Version 1)
Quarter: 2022Q3

REPORT INFORMATION
  Report Type: Report from Study
  Country: US (occurrence: US)
  Receive Date: 20220704
  Receipt Date: 20220704
  Transmission Date: 20221027
  Serious: Yes (Other)
  Sender: FDA-Public Use
  Company Number: US-BRISTOL-MYERS SQUIBB COMPANY-2022-061401

PATIENT
  Age: 61 Year
  Sex: Male
  Weight: 102.01 kg

DRUGS (1)
  1. REVLIMID [Suspect]
     Active Substance: LENALIDOMIDE
     Indication: Plasma cell myeloma
     Dosage: 25 MG FOR 21 DAYS 7DAY 0FF
     Route: 048
     Dates: start: 20220511

REACTIONS (1)
  - Prostatitis [Unknown]
